FAERS Safety Report 19422956 (Version 1)
Quarter: 2021Q2

REPORT INFORMATION
  Report Type: Spontaneous
  Country: US (occurrence: US)
  Receive Date: 20210616
  Receipt Date: 20210616
  Transmission Date: 20210717
  Serious: No
  Sender: FDA-Public Use
  Company Number: US-RICONPHARMA, LLC-2021RIC000002

PATIENT
  Sex: Female

DRUGS (4)
  1. CYMBALTA [Concomitant]
     Active Substance: DULOXETINE HYDROCHLORIDE
     Indication: DEPRESSION
     Dosage: UNK
     Route: 065
  2. BUPROPION. [Concomitant]
     Active Substance: BUPROPION
     Indication: DEPRESSION
     Dosage: UNK
     Route: 065
  3. SCOPOLAMINE [Suspect]
     Active Substance: SCOPOLAMINE
     Indication: VOMITING
  4. SCOPOLAMINE [Suspect]
     Active Substance: SCOPOLAMINE
     Indication: NAUSEA
     Dosage: UNK
     Route: 062

REACTIONS (7)
  - Pruritus [Not Recovered/Not Resolved]
  - Product administration error [Unknown]
  - Incorrect product administration duration [Unknown]
  - Vomiting [Unknown]
  - Nausea [Unknown]
  - Erythema [Not Recovered/Not Resolved]
  - Burning sensation [Not Recovered/Not Resolved]
